FAERS Safety Report 8882490 (Version 2)
Quarter: 2012Q4

REPORT INFORMATION
  Report Type: 
  Country: US (occurrence: US)
  Receive Date: 20121102
  Receipt Date: 20121119
  Transmission Date: 20130627
  Serious: Yes (Hospitalization)
  Sender: FDA-Public Use
  Company Number: US-MPIJNJ-2012-07551

PATIENT
  Age: 60 Year
  Sex: Male
  Weight: 73.3 kg

DRUGS (5)
  1. VELCADE [Suspect]
     Indication: MULTIPLE MYELOMA
     Dosage: 2.3 mg, Cyclic
     Route: 042
     Dates: start: 20120607, end: 20120729
  2. DEXAMETHASONE [Suspect]
     Indication: MULTIPLE MYELOMA
     Dosage: UNK UNK, Cyclic
     Dates: start: 20120607, end: 20120801
  3. LENALIDOMIDE [Suspect]
     Indication: MULTIPLE MYELOMA
     Dosage: UNK UNK, Cyclic
     Dates: start: 20120607, end: 20120801
  4. MELPHALAN [Suspect]
     Indication: MULTIPLE MYELOMA
     Dosage: 310 mg, qd
     Route: 042
     Dates: start: 20121003, end: 20121003
  5. G-CSF [Concomitant]
     Indication: MULTIPLE MYELOMA
     Dosage: 5 ?g/kg, Cyclic
     Dates: start: 20121010, end: 20121017

REACTIONS (4)
  - Tachycardia [Recovered/Resolved]
  - Pyrexia [Recovered/Resolved]
  - Diarrhoea [Recovered/Resolved]
  - Nausea [Recovered/Resolved]
